FAERS Safety Report 11839973 (Version 1)
Quarter: 2015Q4

REPORT INFORMATION
  Report Type: Spontaneous
  Country: US (occurrence: None)
  Receive Date: 20151215
  Receipt Date: 20151215
  Transmission Date: 20160305
  Serious: Yes (Other)
  Sender: FDA-Public Use
  Company Number: None

PATIENT
  Age: 50 Year
  Sex: Male

DRUGS (1)
  1. STELARA [Suspect]
     Active Substance: USTEKINUMAB
     Indication: PSORIASIS
     Dosage: 90 MG/ML, Q12 WEEKS, SC
     Route: 058
     Dates: start: 20150825

REACTIONS (4)
  - Headache [None]
  - Lethargy [None]
  - Drug ineffective [None]
  - Liver disorder [None]

NARRATIVE: CASE EVENT DATE: 20151212
